FAERS Safety Report 11379963 (Version 1)
Quarter: 2015Q3

REPORT INFORMATION
  Report Type: Spontaneous
  Country: GB (occurrence: GB)
  Receive Date: 20150814
  Receipt Date: 20150814
  Transmission Date: 20151125
  Serious: Yes (Hospitalization)
  Sender: FDA-Public Use
  Company Number: GB-SUN PHARMACEUTICAL INDUSTRIES LTD-2013R1-65103

PATIENT
  Age: 64 Year
  Sex: Male

DRUGS (7)
  1. KETAMINE [Concomitant]
     Active Substance: KETAMINE
     Indication: ANALGESIC THERAPY
     Dosage: 50 MG, TID
     Route: 048
  2. MORPHINE [Suspect]
     Active Substance: MORPHINE
     Indication: NEURALGIA
     Dosage: UNK
     Route: 065
  3. KETAMINE [Concomitant]
     Active Substance: KETAMINE
     Indication: ANALGESIC THERAPY
     Dosage: 40-400 MG OVER 24 HOURS
     Route: 058
  4. KETAMINE/HYDROMORPHONE/MIDAZOLAM [Concomitant]
     Indication: PRODUCT USED FOR UNKNOWN INDICATION
     Dosage: UNK
     Route: 065
  5. KETAMINE [Concomitant]
     Active Substance: KETAMINE
     Indication: ANALGESIC THERAPY
     Dosage: 75 MG, TID
     Route: 048
  6. KETAMINE [Concomitant]
     Active Substance: KETAMINE
     Indication: ANALGESIC THERAPY
     Dosage: 15 MG, SINGLE
     Route: 058
  7. KETAMINE [Concomitant]
     Active Substance: KETAMINE
     Indication: ANALGESIC THERAPY
     Dosage: 300 MG, DAILY
     Route: 058

REACTIONS (3)
  - Pruritus [Unknown]
  - Drug ineffective [Unknown]
  - Nausea [Unknown]
